FAERS Safety Report 10275618 (Version 2)
Quarter: 2014Q3

REPORT INFORMATION
  Report Type: Spontaneous
  Country: GB (occurrence: GB)
  Receive Date: 20140703
  Receipt Date: 20140723
  Transmission Date: 20150326
  Serious: Yes (Hospitalization, Disabling, Other)
  Sender: FDA-Public Use
  Company Number: GB-MYLANLABS-2014S1014873

PATIENT
  Age: 74 Year
  Sex: Male
  Weight: 101.6 kg

DRUGS (3)
  1. GABAPENTIN. [Suspect]
     Active Substance: GABAPENTIN
     Indication: HEADACHE
     Route: 048
     Dates: end: 20140512
  2. GABAPENTIN. [Suspect]
     Active Substance: GABAPENTIN
     Indication: HEADACHE
     Dosage: DOSE INCREASED FROM 100MG TO 300MG.
     Route: 048
     Dates: start: 20140405
  3. SIMVASTATIN. [Concomitant]
     Active Substance: SIMVASTATIN

REACTIONS (6)
  - Hypersomnia [Recovering/Resolving]
  - Musculoskeletal stiffness [Recovering/Resolving]
  - Vascular dementia [Recovering/Resolving]
  - Confusional state [Unknown]
  - Pain [Unknown]
  - Dysarthria [Recovering/Resolving]

NARRATIVE: CASE EVENT DATE: 20140405
